FAERS Safety Report 7283731-8 (Version None)
Quarter: 2011Q1

REPORT INFORMATION
  Report Type: 
  Country: None (occurrence: None)
  Receive Date: 20110126
  Receipt Date: 20110114
  Transmission Date: 20110831
  Serious: Yes (Death)
  Sender: FDA-Public Use
  Company Number: B0695658A

PATIENT
  Age: 18 Year
  Sex: Female

DRUGS (1)
  1. PROPAFENONE HYDROCHLORIDE [Suspect]
     Dosage: ORAL
     Route: 048

REACTIONS (10)
  - UNRESPONSIVE TO STIMULI [None]
  - TACHYCARDIA [None]
  - COMPLETED SUICIDE [None]
  - NO THERAPEUTIC RESPONSE [None]
  - OEDEMA [None]
  - ELECTROCARDIOGRAM QRS COMPLEX PROLONGED [None]
  - OVERDOSE [None]
  - INTENTIONAL SELF-INJURY [None]
  - CARDIAC ARREST [None]
  - PULMONARY CONGESTION [None]
